FAERS Safety Report 15255435 (Version 1)
Quarter: 2018Q3

REPORT INFORMATION
  Report Type: Spontaneous
  Country: FR (occurrence: FR)
  Receive Date: 20180808
  Receipt Date: 20180808
  Transmission Date: 20181010
  Serious: Yes (Congenital Anomaly, Other)
  Sender: FDA-Public Use
  Company Number: FR-SAKK-2018SA201615AA

PATIENT
  Age: 0 Day
  Sex: Female
  Weight: 2.7 kg

DRUGS (2)
  1. LOVENOX [Suspect]
     Active Substance: ENOXAPARIN SODIUM
     Dosage: UNK
     Route: 058
  2. WARFARIN SODIUM. [Suspect]
     Active Substance: WARFARIN SODIUM
     Indication: CARDIAC VALVE PROSTHESIS USER
     Dosage: 8 MG, QD
     Route: 048

REACTIONS (1)
  - Maxillonasal dysplasia [Not Recovered/Not Resolved]

NARRATIVE: CASE EVENT DATE: 20170727
